FAERS Safety Report 19523181 (Version 2)
Quarter: 2021Q4

REPORT INFORMATION
  Report Type: Spontaneous
  Country: US (occurrence: US)
  Receive Date: 20210713
  Receipt Date: 20211102
  Transmission Date: 20220303
  Serious: No
  Sender: FDA-Public Use
  Company Number: US-BRISTOL-MYERS SQUIBB COMPANY-BMS-2021-067904

PATIENT
  Age: 90 Year
  Sex: Male

DRUGS (2)
  1. SPRYCEL [Suspect]
     Active Substance: DASATINIB
     Indication: Chronic myeloid leukaemia
     Dosage: 50 MILLIGRAM, 4 TIMES A WEEK
     Route: 048
     Dates: start: 20200811
  2. SPRYCEL [Suspect]
     Active Substance: DASATINIB
     Dosage: 50 MILLIGRAM, TAKE 1 TABLET 1 TIME DAILY ON MONDAY, WEDNESDAY, FRIDAY AND SATURDAY
     Route: 048
     Dates: start: 202107

REACTIONS (3)
  - Off label use [Unknown]
  - Dyspnoea [Unknown]
  - Rash pruritic [Unknown]

NARRATIVE: CASE EVENT DATE: 20200811
